FAERS Safety Report 5083915-3 (Version None)
Quarter: 2006Q3

REPORT INFORMATION
  Report Type: 
  Country: None (occurrence: None)
  Receive Date: 20060727
  Receipt Date: 20060410
  Transmission Date: 20061208
  Serious: Yes (Other)
  Sender: FDA-Public Use
  Company Number: 2006050765

PATIENT
  Age: 57 Year
  Sex: Male

DRUGS (1)
  1. LYRICA [Suspect]
     Indication: NEUROPATHY

REACTIONS (2)
  - DRUG INEFFECTIVE [None]
  - INTERVERTEBRAL DISC PROTRUSION [None]
